FAERS Safety Report 20797110 (Version 2)
Quarter: 2022Q2

REPORT INFORMATION
  Report Type: Spontaneous
  Country: ES (occurrence: ES)
  Receive Date: 20220506
  Receipt Date: 20220511
  Transmission Date: 20220720
  Serious: Yes (Other)
  Sender: FDA-Public Use
  Company Number: ES-009507513-2204ESP008261

PATIENT
  Age: 32 Year
  Sex: Female
  Weight: 62 kg

DRUGS (3)
  1. ROCURONIUM BROMIDE [Suspect]
     Active Substance: ROCURONIUM BROMIDE
     Indication: Neuromuscular blocking therapy
     Dosage: 70 MILLIGRAM, REPORTED AS ^ADMINISTERED DOSE OF 10MG OR 5MG BOLUSES WAS 70MG^
     Dates: start: 20220203, end: 20220203
  2. ROCURONIUM BROMIDE [Suspect]
     Active Substance: ROCURONIUM BROMIDE
     Dosage: 600 MILLIGRAM
     Dates: start: 20220203, end: 20220203
  3. BRIDION [Suspect]
     Active Substance: SUGAMMADEX
     Indication: Neuromuscular blockade reversal
     Dosage: 200 MILLIGRAM
     Dates: start: 20220203, end: 20220203

REACTIONS (5)
  - Hypoventilation [Recovered/Resolved]
  - Tachypnoea [Recovered/Resolved]
  - Neuromuscular block prolonged [Recovered/Resolved]
  - Therapeutic product effect decreased [Unknown]
  - Product use issue [Unknown]

NARRATIVE: CASE EVENT DATE: 20220203
